FAERS Safety Report 24108133 (Version 1)
Quarter: 2024Q3

REPORT INFORMATION
  Report Type: Spontaneous
  Country: NL (occurrence: NL)
  Receive Date: 20240718
  Receipt Date: 20240718
  Transmission Date: 20241017
  Serious: Yes (Life-Threatening)
  Sender: AMGEN
  Company Number: NL-AMGEN-NLDSP2024140094

PATIENT
  Age: 48 Year
  Sex: Female
  Weight: 75 kg

DRUGS (2)
  1. REPATHA [Suspect]
     Active Substance: EVOLOCUMAB
     Indication: Blood cholesterol
     Dosage: 1 DOSAGE FORM, Q2WK
     Route: 065
     Dates: start: 20240515, end: 20240529
  2. EZETIMIBE [Suspect]
     Active Substance: EZETIMIBE
     Indication: Blood cholesterol
     Dosage: UNK, 1 X PER DAY
     Route: 065
     Dates: start: 20240515, end: 20240522

REACTIONS (3)
  - Rash [Not Recovered/Not Resolved]
  - Face oedema [Not Recovered/Not Resolved]
  - Rash pruritic [Not Recovered/Not Resolved]
